FAERS Safety Report 9381427 (Version 2)
Quarter: 2013Q3

REPORT INFORMATION
  Report Type: Spontaneous
  Country: US (occurrence: US)
  Receive Date: 20130703
  Receipt Date: 20130715
  Transmission Date: 20140515
  Serious: Yes (Other)
  Sender: FDA-Public Use
  Company Number: PHEH2013US013994

PATIENT
  Sex: Female

DRUGS (2)
  1. COMBIPATCH [Suspect]
     Dosage: UNK UKN (0.05/0.14MG), QD
     Route: 062
     Dates: start: 201202
  2. COMBIPATCH [Suspect]
     Dosage: UNK UKN, UNK
     Route: 062

REACTIONS (2)
  - Neoplasm malignant [Unknown]
  - Breast cancer [Unknown]
